FAERS Safety Report 6555000-2 (Version None)
Quarter: 2010Q1

REPORT INFORMATION
  Report Type: 
  Country: None (occurrence: None)
  Receive Date: 20100126
  Receipt Date: 20100126
  Transmission Date: 20100710
  Serious: Yes (Hospitalization, Disabling)
  Sender: FDA-Public Use
  Company Number: None

PATIENT
  Age: 51 Year
  Sex: Female

DRUGS (1)
  1. DAPTOMYCIN [Suspect]
     Indication: PELVIC ABSCESS
     Dosage: 4 MG/KG/DOSE Q24H IV
     Route: 042
     Dates: start: 20091125, end: 20091205

REACTIONS (2)
  - MYOSITIS [None]
  - RHABDOMYOLYSIS [None]
